FAERS Safety Report 5743304-2 (Version None)
Quarter: 2008Q2

REPORT INFORMATION
  Report Type: 
  Country: None (occurrence: None)
  Receive Date: 20080519
  Receipt Date: 20080509
  Transmission Date: 20081010
  Serious: Yes (Hospitalization)
  Sender: FDA-Public Use
  Company Number: JP-PFIZER INC-2008024428

PATIENT
  Age: 64 Year
  Sex: Male
  Weight: 52 kg

DRUGS (17)
  1. AMLODIN [Suspect]
     Indication: HYPERTENSION
     Dosage: DAILY DOSE:10MG-FREQ:QD
     Route: 048
  2. KLACID [Suspect]
     Dosage: DAILY DOSE:400MG
     Route: 048
     Dates: start: 20080130, end: 20080305
  3. ARTIST [Concomitant]
     Route: 048
  4. ITOROL [Concomitant]
     Route: 048
  5. MUCOSTA [Concomitant]
     Route: 048
  6. ASPIRIN [Concomitant]
     Route: 048
  7. GLYSENNID [Concomitant]
     Route: 048
  8. LIPITOR [Concomitant]
     Route: 048
  9. CHOLEBRINE [Concomitant]
     Route: 048
  10. URINORM [Concomitant]
     Route: 048
  11. DIOVANE [Concomitant]
     Route: 048
  12. CALCIUM POLYSTYRENE SULFONATE [Concomitant]
     Route: 048
  13. DORAL [Concomitant]
     Route: 048
  14. FLUITRAN [Concomitant]
     Route: 048
  15. FOLIAMIN [Concomitant]
  16. LASIX [Concomitant]
  17. FURTULON [Concomitant]
     Route: 048

REACTIONS (3)
  - BLOOD CREATININE INCREASED [None]
  - BLOOD UREA INCREASED [None]
  - HYPOTENSION [None]
